FAERS Safety Report 8329228-5 (Version None)
Quarter: 2012Q2

REPORT INFORMATION
  Report Type: 
  Country: None (occurrence: None)
  Receive Date: 20120502
  Receipt Date: 20120425
  Transmission Date: 20120825
  Serious: Yes (Life-Threatening)
  Sender: FDA-Public Use
  Company Number: JP-JNJFOC-20120315018

PATIENT
  Sex: Female

DRUGS (5)
  1. DORIPENEM MONOHYDRATE [Suspect]
     Indication: INFECTION
     Dosage: 0.5 G THREE TIMES DAILY
     Route: 041
     Dates: start: 20120316
  2. DORIPENEM MONOHYDRATE [Suspect]
     Dosage: 0.5 G THREE TIMES DAILY
     Route: 041
     Dates: start: 20120305, end: 20120309
  3. FLUMARIN [Concomitant]
     Indication: INFECTION
     Route: 042
     Dates: start: 20120304, end: 20120305
  4. TPN ELECTROLYTES IN PLASTIC CONTAINER [Concomitant]
     Route: 065
     Dates: start: 20120305
  5. ALL OTHER THERAPEUTIC DRUGS [Concomitant]
     Route: 065
     Dates: start: 20120307

REACTIONS (2)
  - PLATELET COUNT DECREASED [None]
  - DISSEMINATED INTRAVASCULAR COAGULATION [None]
